FAERS Safety Report 7999592-5 (Version None)
Quarter: 2011Q4

REPORT INFORMATION
  Report Type: 
  Country: None (occurrence: None)
  Receive Date: 20111221
  Receipt Date: 20111212
  Transmission Date: 20120403
  Serious: Yes (Hospitalization)
  Sender: FDA-Public Use
  Company Number: JP-MERCK-1112USA00167

PATIENT
  Age: 69 Year
  Sex: Male

DRUGS (1)
  1. PEPCID [Suspect]
     Route: 065
     Dates: start: 20111126, end: 20111128

REACTIONS (1)
  - GASTRIC CANCER [None]
